FAERS Safety Report 5515110-5 (Version None)
Quarter: 2007Q4

REPORT INFORMATION
  Report Type: 
  Country: None (occurrence: None)
  Receive Date: 20071113
  Receipt Date: 20070108
  Transmission Date: 20080405
  Serious: No
  Sender: FDA-Public Use
  Company Number: A0634747A

PATIENT
  Age: 57 Year
  Sex: Male

DRUGS (4)
  1. COREG [Suspect]
     Dosage: 25MG PER DAY
     Route: 048
     Dates: start: 20050101, end: 20060106
  2. CLONIDINE [Concomitant]
  3. MICARDIS [Concomitant]
  4. COUMADIN [Concomitant]

REACTIONS (1)
  - ERECTILE DYSFUNCTION [None]
